FAERS Safety Report 23258623 (Version 12)
Quarter: 2025Q3

REPORT INFORMATION
  Report Type: Spontaneous
  Country: US (occurrence: US)
  Receive Date: 20231204
  Receipt Date: 20250702
  Transmission Date: 20251021
  Serious: No
  Sender: PFIZER
  Company Number: US-PFIZER INC-PV202300182145

PATIENT
  Age: 79 Year
  Sex: Male
  Weight: 64.853 kg

DRUGS (10)
  1. BOSULIF [Suspect]
     Active Substance: BOSUTINIB MONOHYDRATE
     Indication: Myeloid leukaemia
     Route: 048
  2. BOSULIF [Suspect]
     Active Substance: BOSUTINIB MONOHYDRATE
     Dosage: 300 MG, 1X/DAY, TAKE 3 TABLET BY MOUTH ONCE DAILY. SHOULD BE TAKEN WITH FOOD.
     Route: 048
     Dates: start: 202310
  3. BOSULIF [Suspect]
     Active Substance: BOSUTINIB MONOHYDRATE
     Dosage: 200 MG, 1X/DAY, TAKE (2) TABLET(S) BY MOUTH ONCE DAILY WITH FOOD
     Route: 048
  4. CENTRUM SILVER [ASCORBIC ACID;BETACAROTENE;BIOTIN;CALCIUM;CHROMIUM;COL [Concomitant]
  5. FISH OIL [Concomitant]
     Active Substance: FISH OIL
  6. GLUCOSAMINE [Concomitant]
     Active Substance: GLUCOSAMINE
  7. LOCOID [Concomitant]
     Active Substance: HYDROCORTISONE BUTYRATE
  8. MELOXICAM [Concomitant]
     Active Substance: MELOXICAM
  9. ROPINIROLE [Concomitant]
     Active Substance: ROPINIROLE
  10. VITAMIN D3 [Concomitant]
     Active Substance: CHOLECALCIFEROL

REACTIONS (2)
  - Pruritus [Unknown]
  - Peripheral swelling [Unknown]
